FAERS Safety Report 21008412 (Version 3)
Quarter: 2022Q3

REPORT INFORMATION
  Report Type: Spontaneous
  Country: FR (occurrence: FR)
  Receive Date: 20220627
  Receipt Date: 20220822
  Transmission Date: 20221026
  Serious: Yes (Other)
  Sender: FDA-Public Use
  Company Number: FR-CELLTRION INC.-2022FR009823

PATIENT

DRUGS (1)
  1. INFLIXIMAB [Suspect]
     Active Substance: INFLIXIMAB
     Indication: Uveitis
     Dosage: 5 MG/KG, CYCLIC (AT WEEKS 0, 2, 6, AND EVERY 4 TO 6 WEEKS)
     Route: 042

REACTIONS (4)
  - Chronic inflammatory demyelinating polyradiculoneuropathy [Unknown]
  - Product use in unapproved indication [Unknown]
  - Off label use [Unknown]
  - Therapeutic response unexpected [Unknown]
